FAERS Safety Report 6647359-2 (Version None)
Quarter: 2010Q1

REPORT INFORMATION
  Report Type: 
  Country: None (occurrence: None)
  Receive Date: 20100323
  Receipt Date: 20100308
  Transmission Date: 20100710
  Serious: Yes (Hospitalization)
  Sender: FDA-Public Use
  Company Number: D0066748A

PATIENT
  Sex: Female

DRUGS (12)
  1. ZOFRAN [Suspect]
     Indication: NAUSEA
     Route: 048
     Dates: start: 20090114, end: 20090115
  2. ALLOPURINOL [Suspect]
     Dosage: 100MG THREE TIMES PER DAY
     Route: 048
     Dates: start: 20090107
  3. NOVAMINSULFON [Suspect]
     Indication: PAIN
     Route: 048
     Dates: start: 20090105, end: 20090120
  4. TRYASOL [Suspect]
     Indication: PAIN
     Route: 048
     Dates: start: 20090105, end: 20090111
  5. HEPARIN [Suspect]
     Indication: THROMBOSIS PROPHYLAXIS
     Dosage: 7500IU TWICE PER DAY
     Route: 058
     Dates: start: 20090105, end: 20090118
  6. DIOVAN [Suspect]
     Route: 048
     Dates: start: 20090105, end: 20090120
  7. PALLADONE [Suspect]
     Indication: PAIN
     Dosage: 4MG TWICE PER DAY
     Route: 048
     Dates: end: 20090115
  8. PANTOPRAZOLE [Suspect]
     Indication: PROPHYLAXIS
     Route: 048
     Dates: start: 20090105
  9. IMODIUM [Suspect]
     Route: 048
     Dates: start: 20090113, end: 20090119
  10. DURAGESIC-100 [Suspect]
     Indication: PAIN
     Dosage: 100MCG EVERY 3 DAYS
     Route: 062
     Dates: start: 20090114
  11. MULTIPLE MEDICATION [Suspect]
     Route: 065
  12. MULTIPLE MEDICATION [Concomitant]
     Route: 065

REACTIONS (8)
  - BLISTER [None]
  - CONSTIPATION [None]
  - LIP EROSION [None]
  - MUCOSAL EROSION [None]
  - ORAL MUCOSAL ERYTHEMA [None]
  - PRURITUS [None]
  - RASH MACULAR [None]
  - STEVENS-JOHNSON SYNDROME [None]
